FAERS Safety Report 6404634-4 (Version None)
Quarter: 2009Q4

REPORT INFORMATION
  Report Type: 
  Country: None (occurrence: None)
  Receive Date: 20091016
  Receipt Date: 20091014
  Transmission Date: 20100525
  Serious: Yes (Life-Threatening, Hospitalization)
  Sender: FDA-Public Use
  Company Number: CHNY2009NL03384

PATIENT
  Sex: Male

DRUGS (13)
  1. SCOPODERM TTS (NCH) [Suspect]
     Indication: SALIVARY HYPERSECRETION
     Dosage: 1 DF, QD
     Route: 062
     Dates: start: 20090730
  2. PIPAMPERONE [Concomitant]
  3. CLOBAZAM [Concomitant]
  4. CARBAMAZEPINE [Concomitant]
     Dosage: 300 MG, QD
     Dates: start: 20090108
  5. CARBAMAZEPINE PCH RETARD [Concomitant]
     Dosage: 300 MG, QD
     Dates: start: 20090108
  6. LACTULOSE [Concomitant]
     Dosage: 15 ML, UNK
     Dates: start: 20040716
  7. SIMVASTATIN [Concomitant]
     Dosage: 20 MG, QD
     Dates: start: 20010309
  8. FRISIUM [Concomitant]
     Dosage: 10 MG, QD
     Dates: start: 20000331
  9. DIDROKIT [Concomitant]
     Dosage: UNK MG, QD
     Dates: start: 20001009
  10. MOVICOLON [Concomitant]
     Dosage: 1 DF, QD
     Dates: start: 20071024
  11. DIPIPERON [Concomitant]
     Dosage: 10 MG, BID
     Dates: start: 20080213
  12. DIPHANTOINE Z [Concomitant]
     Dosage: 100 MG, BID
     Dates: start: 20080730
  13. DIPHANTOINE Z [Concomitant]
     Dosage: 75 MG, QD
     Dates: start: 20080730

REACTIONS (7)
  - COMA [None]
  - FALL [None]
  - GAIT DISTURBANCE [None]
  - HYPOTENSION [None]
  - OFF LABEL USE [None]
  - OVERDOSE [None]
  - POISONING [None]
